FAERS Safety Report 16757801 (Version 1)
Quarter: 2019Q3

REPORT INFORMATION
  Report Type: Spontaneous
  Country: DE (occurrence: DE)
  Receive Date: 20190830
  Receipt Date: 20190830
  Transmission Date: 20191005
  Serious: Yes (Other)
  Sender: FDA-Public Use
  Company Number: DE-BIOGEN-2019BI00760901

PATIENT
  Age: 38 Year
  Sex: Female

DRUGS (1)
  1. TECFIDERA [Suspect]
     Active Substance: DIMETHYL FUMARATE
     Indication: RELAPSING-REMITTING MULTIPLE SCLEROSIS
     Route: 048
     Dates: start: 20190321, end: 20190630

REACTIONS (9)
  - Blood lactate dehydrogenase increased [Not Recovered/Not Resolved]
  - Abdominal pain upper [Unknown]
  - Alanine aminotransferase increased [Not Recovered/Not Resolved]
  - Nausea [Unknown]
  - Chromaturia [Unknown]
  - Blood alkaline phosphatase increased [Not Recovered/Not Resolved]
  - Blood bilirubin increased [Not Recovered/Not Resolved]
  - Gamma-glutamyltransferase increased [Not Recovered/Not Resolved]
  - Scleral discolouration [Unknown]

NARRATIVE: CASE EVENT DATE: 20190626
